FAERS Safety Report 6245167-8 (Version None)
Quarter: 2009Q2

REPORT INFORMATION
  Report Type: 
  Country: None (occurrence: None)
  Receive Date: 20090619
  Receipt Date: 20090325
  Transmission Date: 20091009
  Serious: No
  Sender: FDA-Public Use
  Company Number: ALL1-2009-00804

PATIENT
  Age: 22 Year
  Sex: Male
  Weight: 77.1 kg

DRUGS (6)
  1. VYVANSE [Suspect]
     Indication: ATTENTION DEFICIT/HYPERACTIVITY DISORDER
     Dosage: 30 MG, 1X/DAY; QD, ORAL; 30 MG, 2X/DAY BID FIRST DOSE IN AM, SECOND DOSE AT 3:00PM, ORAL
     Route: 048
     Dates: start: 20090301, end: 20090323
  2. VYVANSE [Suspect]
     Indication: ATTENTION DEFICIT/HYPERACTIVITY DISORDER
     Dosage: 30 MG, 1X/DAY; QD, ORAL; 30 MG, 2X/DAY BID FIRST DOSE IN AM, SECOND DOSE AT 3:00PM, ORAL
     Route: 048
     Dates: start: 20090324
  3. VITAMIN C /00008001 (ASCORBIC ACID) CAPSULE [Suspect]
     Indication: VITAMIN SUPPLEMENTATION
     Dosage: MG, 1X/DAY; QD, ORAL
     Route: 048
  4. CORTISOL /00014602/ (CORTISONE ACETATE) [Concomitant]
  5. THYROID HORMONES [Concomitant]
  6. DHEA (PRASTERONE) [Concomitant]

REACTIONS (3)
  - DRUG EFFECT DECREASED [None]
  - DRUG INTERACTION [None]
  - DRUG PRESCRIBING ERROR [None]
